FAERS Safety Report 9282179 (Version 1)
Quarter: 2013Q2

REPORT INFORMATION
  Report Type: Spontaneous
  Country: US (occurrence: None)
  Receive Date: 20130508
  Receipt Date: 20130508
  Transmission Date: 20140414
  Serious: Yes (Hospitalization)
  Sender: FDA-Public Use
  Company Number: None

PATIENT
  Age: 46 Year
  Sex: Female
  Weight: 44.45 kg

DRUGS (25)
  1. VENOFER [Suspect]
     Indication: IRON DEFICIENCY ANAEMIA
     Dosage: 400 MG IVPB QWK X 2
     Dates: start: 20130412, end: 20130429
  2. AMUCORT-HC [Concomitant]
  3. NORCO [Concomitant]
  4. CYMBALTA [Concomitant]
  5. PREDNISONE [Concomitant]
  6. EMLA CREAM [Concomitant]
  7. PREMARIN [Concomitant]
  8. FLUCONAZOLE [Concomitant]
  9. PRENATAL VITAMIN [Concomitant]
  10. LEVAQUIN [Concomitant]
  11. PROCTOZONE [Concomitant]
  12. PROTONIX [Concomitant]
  13. PULMICORT [Concomitant]
  14. RAPAMUNE [Concomitant]
  15. SPIRONOLACTONE [Concomitant]
  16. TESSALON [Concomitant]
  17. TRAMADOL [Concomitant]
  18. VALTREX [Concomitant]
  19. XOPENEX [Concomitant]
  20. ZOFRAN [Concomitant]
  21. SINGULAIR [Concomitant]
  22. IPTRATROPIUM [Concomitant]
  23. FLUOROMETHOLONE EYE DROPS [Concomitant]
  24. PAMIDRONATE [Concomitant]
  25. ALBUMIN [Concomitant]

REACTIONS (2)
  - Respiratory distress [None]
  - Cyanosis [None]
